FAERS Safety Report 12582725 (Version 2)
Quarter: 2017Q1

REPORT INFORMATION
  Report Type: Spontaneous
  Country: CA (occurrence: CA)
  Receive Date: 20160722
  Receipt Date: 20170206
  Transmission Date: 20170428
  Serious: Yes (Hospitalization)
  Sender: FDA-Public Use
  Company Number: CA-SUN PHARMACEUTICAL INDUSTRIES LTD-2016US-120633

PATIENT
  Age: 41 Year
  Sex: Male

DRUGS (3)
  1. PREDNISONE. [Concomitant]
     Active Substance: PREDNISONE
     Indication: PRODUCT USED FOR UNKNOWN INDICATION
     Dosage: UNK
     Route: 065
     Dates: start: 20151001
  2. PANTOPRAZOLE [Suspect]
     Active Substance: PANTOPRAZOLE SODIUM
     Indication: REFLUX GASTRITIS
     Dosage: UNK
     Route: 065
  3. TECTA [Suspect]
     Active Substance: PANTOPRAZOLE MAGNESIUM
     Indication: REFLUX GASTRITIS
     Dosage: UNK
     Route: 065

REACTIONS (2)
  - Crohn^s disease [Unknown]
  - Ileostomy [Unknown]

NARRATIVE: CASE EVENT DATE: 201510
